FAERS Safety Report 5178393-X (Version None)
Quarter: 2006Q4

REPORT INFORMATION
  Report Type: 
  Country: None (occurrence: None)
  Receive Date: 20061218
  Receipt Date: 20060823
  Transmission Date: 20070319
  Serious: No
  Sender: FDA-Public Use
  Company Number: US-AMGEN-KDL191006

PATIENT
  Sex: Female

DRUGS (3)
  1. ENBREL [Suspect]
     Indication: RHEUMATOID ARTHRITIS
     Route: 058
     Dates: start: 20060728
  2. ENBREL [Suspect]
     Indication: ANKYLOSING SPONDYLITIS
  3. ENBREL [Suspect]
     Indication: DRUG USE FOR UNKNOWN INDICATION

REACTIONS (14)
  - ABDOMINAL PAIN [None]
  - ALOPECIA [None]
  - CONDITION AGGRAVATED [None]
  - CONSTIPATION [None]
  - DIZZINESS [None]
  - FATIGUE [None]
  - HEADACHE [None]
  - INJECTION SITE PAIN [None]
  - MIGRAINE [None]
  - NAUSEA [None]
  - NEURALGIA [None]
  - RASH GENERALISED [None]
  - SENSORY LOSS [None]
  - URTICARIA [None]
